FAERS Safety Report 9449888 (Version 2)
Quarter: 2013Q3

REPORT INFORMATION
  Report Type: Report from Study
  Country: US (occurrence: US)
  Receive Date: 20130809
  Receipt Date: 20130906
  Transmission Date: 20140515
  Serious: Yes (Hospitalization)
  Sender: FDA-Public Use
  Company Number: US-NAPPMUNDI-USA-2013-0105177

PATIENT
  Age: 47 Year
  Sex: Male
  Weight: 70.3 kg

DRUGS (3)
  1. OXYCONTIN (NDA 22-272) [Suspect]
     Indication: PAIN
     Dosage: 80 MG, UNK
     Route: 048
  2. OXYCONTIN (NDA 22-272) [Suspect]
     Dosage: 160 MG, TID
     Route: 048
     Dates: start: 20130211
  3. COUMADIN                           /00014802/ [Concomitant]
     Indication: PRODUCT USED FOR UNKNOWN INDICATION
     Dosage: UNK
     Route: 065

REACTIONS (2)
  - Arthralgia [Unknown]
  - Osteonecrosis [Not Recovered/Not Resolved]
